FAERS Safety Report 10005486 (Version 3)
Quarter: 2015Q3

REPORT INFORMATION
  Report Type: Report from Study
  Country: AR (occurrence: AR)
  Receive Date: 20140313
  Receipt Date: 20150921
  Transmission Date: 20151125
  Serious: Yes (Other)
  Sender: FDA-Public Use
  Company Number: AR-ROCHE-1363186

PATIENT
  Sex: Female
  Weight: 71 kg

DRUGS (3)
  1. XOLAIR [Suspect]
     Active Substance: OMALIZUMAB
     Dosage: 5 DF (5 AMPOULS), QMO (750 MG MONTHLY)
     Route: 058
     Dates: start: 2013, end: 2015
  2. XOLAIR [Suspect]
     Active Substance: OMALIZUMAB
     Indication: ASTHMA
     Dosage: 5 APPLICATIONS (750 MG MONTHLY), 4 AMPOULES
     Route: 058
     Dates: start: 201303
  3. XOLAIR [Suspect]
     Active Substance: OMALIZUMAB
     Dosage: 3 DF (4 AMPOULES)
     Route: 058

REACTIONS (9)
  - Malaise [Unknown]
  - Nasal congestion [Unknown]
  - Pain [Unknown]
  - Incorrect dose administered [Unknown]
  - Increased viscosity of upper respiratory secretion [Unknown]
  - Weight decreased [Unknown]
  - Blood immunoglobulin E increased [Unknown]
  - Hypersensitivity [Unknown]
  - Drug ineffective [Unknown]

NARRATIVE: CASE EVENT DATE: 2015
